FAERS Safety Report 10056335 (Version 1)
Quarter: 2014Q2

REPORT INFORMATION
  Report Type: Spontaneous
  Country: GB (occurrence: None)
  Receive Date: 20140401
  Receipt Date: 20140401
  Transmission Date: 20141212
  Serious: Yes (Other)
  Sender: FDA-Public Use
  Company Number: AUR-APL-2014-03932

PATIENT
  Age: 76 Year
  Sex: Male
  Weight: 99.78 kg

DRUGS (3)
  1. SIMVASTATIN [Suspect]
     Indication: SURGERY
     Dosage: 20MG (20MG, 1 IN 1D) ORAL
     Route: 048
     Dates: start: 20120130
  2. ASPIRIN [Concomitant]
  3. RAMIPRIL [Concomitant]

REACTIONS (6)
  - Myalgia [None]
  - Fatigue [None]
  - Insomnia [None]
  - Decreased appetite [None]
  - Activities of daily living impaired [None]
  - Sexual dysfunction [None]
